FAERS Safety Report 11150559 (Version 1)
Quarter: 2015Q2

REPORT INFORMATION
  Report Type: Spontaneous
  Country: US (occurrence: US)
  Receive Date: 20150601
  Receipt Date: 20150601
  Transmission Date: 20150821
  Serious: Yes (Hospitalization, Other)
  Sender: FDA-Public Use
  Company Number: US-UCBSA-2015016571

PATIENT
  Sex: Male
  Weight: 66.2 kg

DRUGS (4)
  1. DILANTIN [Suspect]
     Active Substance: PHENYTOIN
     Indication: SEIZURE
     Dosage: UNK
     Dates: start: 201406
  2. KEPPRA [Suspect]
     Active Substance: LEVETIRACETAM
     Indication: SEIZURE
     Dosage: UNK
     Dates: start: 201406
  3. MEROPENEM. [Suspect]
     Active Substance: MEROPENEM
     Indication: ABSCESS
     Dosage: 4 IN 1 D
     Route: 042
     Dates: start: 20150226, end: 201502
  4. HUMIRA [Suspect]
     Active Substance: ADALIMUMAB
     Indication: CROHN^S DISEASE
     Dosage: 40MG SOLUTION FOR INJECTION IN PREFILLED SYRINGE EV 2 WEEKS(QOW)
     Route: 058
     Dates: start: 201306, end: 2014

REACTIONS (11)
  - Vomiting [Recovered/Resolved]
  - Pancreatitis [Recovered/Resolved]
  - Localised infection [Unknown]
  - Blood pressure increased [Unknown]
  - Malnutrition [Unknown]
  - Weight decreased [Unknown]
  - Fistula [Unknown]
  - Abscess [Recovered/Resolved]
  - Diverticulitis [Unknown]
  - Iron deficiency [Unknown]
  - Chills [Recovered/Resolved]

NARRATIVE: CASE EVENT DATE: 2014
